FAERS Safety Report 5500580-9 (Version None)
Quarter: 2007Q4

REPORT INFORMATION
  Report Type: 
  Country: None (occurrence: None)
  Receive Date: 20071029
  Receipt Date: 20071018
  Transmission Date: 20080405
  Serious: Yes (Hospitalization)
  Sender: FDA-Public Use
  Company Number: JP-NOVOPROD-268408

PATIENT
  Age: 75 Year
  Sex: Female

DRUGS (1)
  1. NOVORAPID CHU FLEXPEN [Suspect]
     Dosage: UNKNOWN
     Route: 058
     Dates: start: 19920101

REACTIONS (2)
  - HYPOGLYCAEMIA [None]
  - WERNICKE'S ENCEPHALOPATHY [None]
